FAERS Safety Report 6084850-4 (Version None)
Quarter: 2009Q1

REPORT INFORMATION
  Report Type: 
  Country: None (occurrence: None)
  Receive Date: 20090218
  Receipt Date: 20081215
  Transmission Date: 20090719
  Serious: Yes (Other)
  Sender: FDA-Public Use
  Company Number: PIR00320-172009112320

PATIENT
  Sex: Male

DRUGS (8)
  1. HIBICLENS [Suspect]
     Indication: ANTIBIOTIC PROPHYLAXIS
     Dosage: 060
     Dates: start: 20080701
  2. HIBICLENS [Suspect]
     Indication: PREOPERATIVE CARE
     Dosage: 060
     Dates: start: 20080701
  3. HIBICLENS [Suspect]
     Indication: ANTIBIOTIC PROPHYLAXIS
     Dosage: 060
     Dates: start: 20080801
  4. HIBICLENS [Suspect]
     Indication: PREOPERATIVE CARE
     Dosage: 060
     Dates: start: 20080801
  5. HIBICLENS [Suspect]
     Indication: ANTIBIOTIC PROPHYLAXIS
     Dosage: 060
     Dates: start: 20080901
  6. HIBICLENS [Suspect]
     Indication: PREOPERATIVE CARE
     Dosage: 060
     Dates: start: 20080901
  7. HIBICLENS [Suspect]
     Indication: ANTIBIOTIC PROPHYLAXIS
     Dosage: 060
     Dates: start: 20081001
  8. HIBICLENS [Suspect]
     Indication: PREOPERATIVE CARE
     Dosage: 060
     Dates: start: 20081001

REACTIONS (2)
  - POSTOPERATIVE ABSCESS [None]
  - STITCH ABSCESS [None]
